FAERS Safety Report 15734109 (Version 1)
Quarter: 2018Q4

REPORT INFORMATION
  Report Type: Spontaneous
  Country: FR (occurrence: FR)
  Receive Date: 20181218
  Receipt Date: 20181218
  Transmission Date: 20190205
  Serious: Yes (Hospitalization, Other)
  Sender: FDA-Public Use
  Company Number: FR-AUROBINDO-AUR-APL-2018-059746

PATIENT
  Age: 63 Year
  Sex: Male
  Weight: 53 kg

DRUGS (30)
  1. ALPRAZOLAM. [Suspect]
     Active Substance: ALPRAZOLAM
     Indication: ANXIETY
     Dosage: 0.5 MILLIGRAM, DAILY (1-0-1)
     Route: 048
     Dates: start: 20180530
  2. AZANTAC [Suspect]
     Active Substance: RANITIDINE HYDROCHLORIDE
     Indication: GASTROOESOPHAGEAL REFLUX DISEASE
     Dosage: 50 MILLIGRAM, CYCLICAL
     Route: 042
     Dates: start: 20180731, end: 20181122
  3. CYMBALTA [Suspect]
     Active Substance: DULOXETINE HYDROCHLORIDE
     Indication: ANXIETY
     Dosage: 30 MILLIGRAM, DAILY (0-0-1)
     Route: 048
     Dates: start: 20180821
  4. ESOMEPRAZOLE. [Suspect]
     Active Substance: ESOMEPRAZOLE MAGNESIUM
     Indication: GASTROOESOPHAGEAL REFLUX DISEASE
     Dosage: 20 MILLIGRAM, DAILY (0-0-1)
     Route: 048
     Dates: start: 20130612, end: 20181107
  5. ALPRAZOLAM. [Concomitant]
     Active Substance: ALPRAZOLAM
     Indication: METABOLIC ACIDOSIS
     Dosage: 2000 MILLIGRAM, DAILY (2-2-2-2)
     Route: 048
     Dates: start: 20130612
  6. PHOSPHONEUROS [Concomitant]
     Active Substance: CALCIUM PHOSPHATE, DIBASIC, ANHYDROUS\MAGNESIUM GLYCEROPHOSPHATE\PHOSPHORIC ACID\SODIUM PHOSPHATE, DIBASIC
     Indication: BLOOD PHOSPHORUS DECREASED
     Dosage: 50 GTT DROPS, DAILY(25-0-25 (GOUTTES))
     Route: 048
     Dates: start: 20180821
  7. CORTANCYL [Suspect]
     Active Substance: PREDNISONE
     Indication: PROPHYLAXIS AGAINST TRANSPLANT REJECTION
     Dosage: 5 MILLIGRAM, DAILY(1-0-0)
     Route: 048
     Dates: start: 2009
  8. POLARAMINE [Suspect]
     Active Substance: DEXCHLORPHENIRAMINE MALEATE
     Indication: ALLERGY PROPHYLAXIS
     Dosage: 5 MILLIGRAM, CYCLICAL(J1)
     Route: 042
     Dates: start: 20180731, end: 20181122
  9. MOVICOL                            /06401201/ [Concomitant]
     Indication: CONSTIPATION
     Dosage: 2 DOSAGE FORM, DAILY(2-0-0 (SACHET) )
     Route: 048
     Dates: start: 20180803
  10. UVEDOSE [Concomitant]
     Active Substance: CHOLECALCIFEROL
     Indication: VITAMIN D DEFICIENCY
     Dosage: 100000  EVERY MONTH
     Route: 048
     Dates: start: 20130612, end: 20181114
  11. CARBOPLATINE [Suspect]
     Active Substance: CARBOPLATIN
     Indication: SQUAMOUS CELL CARCINOMA OF HEAD AND NECK
     Dosage: 410 MILLIGRAM, CYCLICAL(J1)
     Route: 042
     Dates: start: 20180731, end: 20181122
  12. FLUOROURACILE [Suspect]
     Active Substance: FLUOROURACIL
     Indication: SQUAMOUS CELL CARCINOMA OF HEAD AND NECK
     Dosage: 1650 MILLIGRAM, CYCLICAL(J1, J2, J2,J4)
     Route: 042
     Dates: start: 20180731, end: 20181125
  13. CELLCEPT [Suspect]
     Active Substance: MYCOPHENOLATE MOFETIL\MYCOPHENOLATE MOFETIL HYDROCHLORIDE
     Indication: PROPHYLAXIS AGAINST TRANSPLANT REJECTION
     Dosage: 1000 MILLIGRAM, DAILY(1-0-1)
     Route: 048
     Dates: start: 2009
  14. PRIMPERAN [Suspect]
     Active Substance: METOCLOPRAMIDE HYDROCHLORIDE
     Indication: ANTIEMETIC SUPPORTIVE CARE
     Dosage: 10 MILLIGRAM, CYCLICAL(J2, J3, J4)
     Route: 048
     Dates: start: 20180801
  15. ZOPHREN                            /00955302/ [Suspect]
     Active Substance: ONDANSETRON
     Indication: ANTIEMETIC SUPPORTIVE CARE
     Dosage: 8 MILLIGRAM, CYCLICAL (J1)
     Route: 042
     Dates: start: 20180731
  16. DOLIPRANE [Concomitant]
     Active Substance: ACETAMINOPHEN
     Indication: PAIN
     Dosage: 3 GRAM, DAILY 1-1-1
     Route: 048
     Dates: start: 20180821
  17. SOLU-MEDROL [Suspect]
     Active Substance: METHYLPREDNISOLONE SODIUM SUCCINATE
     Indication: ALLERGY PROPHYLAXIS
     Dosage: 60 MILLIGRAM, CYCLICAL J1
     Route: 042
     Dates: start: 20180731, end: 20181122
  18. TAREG [Suspect]
     Active Substance: VALSARTAN
     Indication: HYPERTENSION
     Dosage: 80 MILLIGRAM, DAILY(0-1-0)
     Route: 048
     Dates: start: 20140423, end: 20181107
  19. SULFARLEM [Concomitant]
     Active Substance: ANETHOLTRITHION
     Indication: APTYALISM
     Dosage: 150 MILLIGRAM, DAILY 2-2-2
     Route: 048
     Dates: start: 20180620
  20. BACTRIM [Concomitant]
     Active Substance: SULFAMETHOXAZOLE\TRIMETHOPRIM
     Indication: INFECTION
     Dosage: 800 MILLIGRAM, DAILY
     Route: 048
     Dates: start: 20180907
  21. LERCANIDIPINE ARROW 10 MG FILM-COATED TABLETS SCORED [Suspect]
     Active Substance: LERCANIDIPINE
     Indication: HYPERTENSION
     Dosage: 10 MILLIGRAM, DAILY 1-0-0
     Route: 048
     Dates: start: 20140614
  22. ACTISKENAN [Suspect]
     Active Substance: MORPHINE SULFATE
     Indication: PAIN
     Dosage: 60 MILLIGRAM, DAILY(10 MG SB 6/JOUR)
     Route: 048
     Dates: start: 20180821
  23. PROGRAF [Suspect]
     Active Substance: TACROLIMUS\TACROLIMUS ANHYDROUS
     Indication: PROPHYLAXIS AGAINST TRANSPLANT REJECTION
     Dosage: 3 MILLIGRAM, DAILY
     Route: 048
     Dates: start: 2009
  24. IMOVANE [Concomitant]
     Active Substance: ZOPICLONE
     Indication: INSOMNIA
     Dosage: 7.5 MILLIGRAM, DAILY(0-0-0-1)
     Route: 048
     Dates: start: 20181009
  25. ZELITREX [Concomitant]
     Active Substance: VALACYCLOVIR HYDROCHLORIDE
     Indication: HERPES ZOSTER
     Dosage: 1000 MILLIGRAM, DAILY(1-0-1)
     Route: 048
     Dates: start: 20180829
  26. ATENOLOL ARROW [Concomitant]
     Active Substance: ATENOLOL
     Indication: HYPERTENSION
     Dosage: 75 MILLIGRAM, DAILY(1-0-0.5)
     Route: 048
     Dates: start: 20130612
  27. ERBITUX [Suspect]
     Active Substance: CETUXIMAB
     Indication: SQUAMOUS CELL CARCINOMA OF HEAD AND NECK
     Dosage: 415 MILLIGRAM, CYCLICAL(415 MG J1 J8 J15)
     Route: 042
     Dates: start: 20180731, end: 20181122
  28. KARDEGIC [Suspect]
     Active Substance: ASPIRIN DL-LYSINE
     Indication: PLATELET AGGREGATION
     Dosage: 75 MILLIGRAM, DAILY(1-0-0)
     Route: 048
     Dates: start: 20131009
  29. SKENAN [Suspect]
     Active Substance: MORPHINE SULFATE
     Indication: PAIN
     Dosage: 60 MILLIGRAM, DAILY(1-0-1)
     Route: 048
     Dates: start: 20180821
  30. XYLOCAINE [Concomitant]
     Active Substance: LIDOCAINE HYDROCHLORIDE
     Indication: ORAL PAIN
     Dosage: 4 DOSAGE FORM, DAILY(1-1-1-1)
     Route: 048
     Dates: start: 20180821

REACTIONS (2)
  - Abdominal compartment syndrome [Recovering/Resolving]
  - Small intestinal obstruction [Recovering/Resolving]

NARRATIVE: CASE EVENT DATE: 20181108
